FAERS Safety Report 18607246 (Version 1)
Quarter: 2020Q4

REPORT INFORMATION
  Report Type: Spontaneous
  Country: US (occurrence: US)
  Receive Date: 20201211
  Receipt Date: 20201211
  Transmission Date: 20210114
  Serious: Yes (Other)
  Sender: FDA-Public Use
  Company Number: US-PFIZER INC-2020488843

PATIENT
  Age: 50 Year
  Sex: Female

DRUGS (2)
  1. ARAVA [Suspect]
     Active Substance: LEFLUNOMIDE
     Dosage: UNK
     Dates: start: 2020, end: 2020
  2. XELJANZ XR [Suspect]
     Active Substance: TOFACITINIB CITRATE
     Indication: RHEUMATOID ARTHRITIS
     Dosage: 11 MG, 1X/DAY
     Route: 048
     Dates: start: 20200429, end: 20201201

REACTIONS (12)
  - Product dose omission issue [Unknown]
  - Loss of personal independence in daily activities [Unknown]
  - Eye inflammation [Unknown]
  - Condition aggravated [Unknown]
  - COVID-19 [Unknown]
  - Pyrexia [Recovering/Resolving]
  - Pain [Recovering/Resolving]
  - Nausea [Unknown]
  - Sinusitis [Unknown]
  - Candida infection [Unknown]
  - Arthropathy [Recovering/Resolving]
  - Ulcerative keratitis [Unknown]

NARRATIVE: CASE EVENT DATE: 2020
